FAERS Safety Report 7476980-7 (Version None)
Quarter: 2011Q2

REPORT INFORMATION
  Report Type: 
  Country: None (occurrence: None)
  Receive Date: 20110512
  Receipt Date: 20110502
  Transmission Date: 20111010
  Serious: Yes (Life-Threatening, Hospitalization)
  Sender: FDA-Public Use
  Company Number: US-BAYER-2011-037587

PATIENT
  Sex: Male

DRUGS (1)
  1. AVELOX [Suspect]
     Dosage: 400 MG, ONCE
     Route: 048
     Dates: start: 20110401, end: 20110401

REACTIONS (5)
  - LOCAL REACTION [None]
  - ERYTHEMA [None]
  - ANAPHYLACTIC REACTION [None]
  - VOMITING [None]
  - PRURITUS [None]
